FAERS Safety Report 9816575 (Version 2)
Quarter: 2014Q1

REPORT INFORMATION
  Report Type: Spontaneous
  Country: FR (occurrence: FR)
  Receive Date: 20140114
  Receipt Date: 20140114
  Transmission Date: 20141002
  Serious: Yes (Hospitalization)
  Sender: FDA-Public Use
  Company Number: FR-ELI_LILLY_AND_COMPANY-FR201307001987

PATIENT
  Age: 77 Year
  Sex: Female

DRUGS (6)
  1. ALIMTA [Suspect]
     Indication: LUNG NEOPLASM MALIGNANT
     Dosage: 500 MG/M2, UNKNOWN
     Route: 042
     Dates: start: 20130610, end: 20130610
  2. EMEND /01627301/ [Suspect]
     Dosage: UNK, UNKNOWN
     Route: 048
     Dates: start: 20130610, end: 20130612
  3. CARBOPLATINE [Suspect]
     Dosage: UNK, UNKNOWN
     Route: 042
     Dates: start: 20130610, end: 20130610
  4. PLATINUM [Concomitant]
     Dosage: UNK, UNKNOWN
     Route: 065
  5. COAPROVEL [Concomitant]
  6. NOVONORM [Concomitant]

REACTIONS (2)
  - Photosensitivity reaction [Recovered/Resolved]
  - Rash papular [Unknown]
